FAERS Safety Report 12544532 (Version 8)
Quarter: 2017Q1

REPORT INFORMATION
  Report Type: Spontaneous
  Country: US (occurrence: US)
  Receive Date: 20160711
  Receipt Date: 20170223
  Transmission Date: 20170428
  Serious: No
  Sender: FDA-Public Use
  Company Number: US-TAKEDA-2016MPI005945

PATIENT
  Age: 65 Year
  Sex: Female
  Weight: 69.39 kg

DRUGS (1)
  1. NINLARO [Suspect]
     Active Substance: IXAZOMIB
     Indication: PLASMA CELL MYELOMA
     Dosage: 2.3 MG, UNK
     Route: 048
     Dates: start: 20160630

REACTIONS (16)
  - Muscle spasms [Not Recovered/Not Resolved]
  - Back pain [Unknown]
  - Tooth abscess [Unknown]
  - Pain in extremity [Not Recovered/Not Resolved]
  - Constipation [Unknown]
  - Off label use [Unknown]
  - Flatulence [Unknown]
  - Nausea [Unknown]
  - Muscle spasms [Unknown]
  - Arthralgia [Unknown]
  - Back pain [Unknown]
  - Sciatica [Unknown]
  - Musculoskeletal pain [Unknown]
  - Blood potassium decreased [Not Recovered/Not Resolved]
  - Rash pruritic [Unknown]
  - Neuropathy peripheral [Unknown]

NARRATIVE: CASE EVENT DATE: 201607
